FAERS Safety Report 4281669-1 (Version None)
Quarter: 2004Q1

REPORT INFORMATION
  Report Type: 
  Country: None (occurrence: None)
  Receive Date: 20040128
  Receipt Date: 20021007
  Transmission Date: 20041129
  Serious: Yes (Hospitalization)
  Sender: FDA-Public Use
  Company Number: UK019434

PATIENT
  Age: 40 Year
  Sex: Female
  Weight: 68 kg

DRUGS (3)
  1. KINERET [Suspect]
     Indication: RHEUMATOID ARTHRITIS
     Dosage: 100 MG, DAILY, SC
     Route: 058
     Dates: start: 20020521, end: 20020603
  2. CLOPREDNOL [Concomitant]
  3. NAPROXEN [Concomitant]

REACTIONS (6)
  - IMPAIRED HEALING [None]
  - INJECTION SITE ERYTHEMA [None]
  - INJECTION SITE PRURITUS [None]
  - LEUKOCYTOCLASTIC VASCULITIS [None]
  - NECROSIS [None]
  - SKIN ULCER [None]
